FAERS Safety Report 5129135-5 (Version None)
Quarter: 2006Q4

REPORT INFORMATION
  Report Type: 
  Country: None (occurrence: None)
  Receive Date: 20061011
  Receipt Date: 20060925
  Transmission Date: 20070319
  Serious: Yes (Death)
  Sender: FDA-Public Use
  Company Number: AU200607003648

PATIENT
  Age: 55 Year
  Sex: Male

DRUGS (8)
  1. XIGRIS [Suspect]
     Indication: SEPSIS
     Dates: start: 20060713
  2. RANITIDINE [Concomitant]
  3. HYDROCORTISONE [Concomitant]
  4. RIFAMPICIN [Concomitant]
  5. VENTOLIN /00139501/(SALBUTAMOL) [Concomitant]
  6. MOXIFLOXACIN HCL [Concomitant]
  7. FLOXACILLIN SODIUM [Concomitant]
  8. THIAMINE                   (THIAMINE) [Concomitant]

REACTIONS (1)
  - STAPHYLOCOCCAL SEPSIS [None]
